FAERS Safety Report 6600568-0 (Version None)
Quarter: 2010Q1

REPORT INFORMATION
  Report Type: 
  Country: None (occurrence: None)
  Receive Date: 20100224
  Receipt Date: 20100212
  Transmission Date: 20100710
  Serious: Yes (Other)
  Sender: FDA-Public Use
  Company Number: US-BAYER-201012547NA

PATIENT
  Sex: Female

DRUGS (5)
  1. MAGNEVIST [Suspect]
     Indication: DIAGNOSTIC PROCEDURE
  2. OMNISCAN [Suspect]
     Indication: DIAGNOSTIC PROCEDURE
  3. OPTIMARK [Suspect]
     Indication: DIAGNOSTIC PROCEDURE
  4. MULTIHANCE [Suspect]
     Indication: DIAGNOSTIC PROCEDURE
  5. PROHANCE [Suspect]
     Indication: DIAGNOSTIC PROCEDURE

REACTIONS (13)
  - ACTIVITIES OF DAILY LIVING IMPAIRED [None]
  - ASTHENIA [None]
  - DEFORMITY [None]
  - JOINT RANGE OF MOTION DECREASED [None]
  - MOTOR DYSFUNCTION [None]
  - MUSCLE TIGHTNESS [None]
  - MUSCULOSKELETAL STIFFNESS [None]
  - NEPHROGENIC SYSTEMIC FIBROSIS [None]
  - PAIN [None]
  - PRURITUS GENERALISED [None]
  - SKIN DISCOLOURATION [None]
  - SKIN FIBROSIS [None]
  - SKIN TIGHTNESS [None]
